FAERS Safety Report 8419315 (Version 3)
Quarter: 2013Q3

REPORT INFORMATION
  Report Type: Report from Study
  Country: JP (occurrence: JP)
  Receive Date: 20120221
  Receipt Date: 20130930
  Transmission Date: 20140515
  Serious: Yes (Life-Threatening, Hospitalization)
  Sender: FDA-Public Use
  Company Number: PHHY2012JP010545

PATIENT
  Age: 38 Year
  Sex: Male

DRUGS (9)
  1. LEPONEX / CLOZARIL [Suspect]
     Indication: SCHIZOPHRENIA
     Dosage: 12.5 MG, DAILY
     Route: 048
     Dates: start: 20120118, end: 20120131
  2. LEPONEX / CLOZARIL [Suspect]
     Dosage: 150 MG, UNK
     Route: 048
     Dates: start: 20120201, end: 20120204
  3. FLUNITRAZEPAM [Concomitant]
     Indication: SCHIZOPHRENIA, PARANOID TYPE
     Dosage: 1 MG, UNK
     Route: 048
     Dates: start: 20120204
  4. ZESULAN [Concomitant]
     Dosage: 9 MG, UNK
     Route: 048
     Dates: start: 20120204
  5. MAGLAX [Concomitant]
     Dosage: 1500 MG, UNK
     Route: 048
     Dates: start: 20120204
  6. BEZATATE [Concomitant]
     Dosage: 400 MG, UNK
     Route: 048
     Dates: start: 20120204
  7. URINORM [Concomitant]
     Dosage: 50 MG, UNK
     Route: 048
     Dates: start: 20120204
  8. TAMIFLU [Concomitant]
     Dosage: 150 MG, UNK
     Route: 048
     Dates: start: 20120202, end: 20120204
  9. CRAVIT [Concomitant]
     Dosage: 500 MG, UNK
     Route: 048
     Dates: start: 20120203, end: 20120204

REACTIONS (6)
  - Pancreatitis acute [Recovering/Resolving]
  - General physical health deterioration [Unknown]
  - Abdominal pain [Unknown]
  - Nausea [Unknown]
  - White blood cell count increased [Unknown]
  - Vomiting [Unknown]
